FAERS Safety Report 17390047 (Version 2)
Quarter: 2020Q1

REPORT INFORMATION
  Report Type: Report from Study
  Country: US (occurrence: US)
  Receive Date: 20200207
  Receipt Date: 20200316
  Transmission Date: 20200409
  Serious: Yes (Other)
  Sender: FDA-Public Use
  Company Number: US-JNJFOC-20200150212

PATIENT
  Sex: Male

DRUGS (1)
  1. SPRAVATO [Suspect]
     Active Substance: ESKETAMINE
     Indication: PRODUCT USED FOR UNKNOWN INDICATION
     Dates: start: 201910

REACTIONS (7)
  - Feeling abnormal [Unknown]
  - Anxiety [Unknown]
  - Deafness [Unknown]
  - Sexual dysfunction [Unknown]
  - Drug ineffective [Unknown]
  - Insomnia [Unknown]
  - Blood pressure inadequately controlled [Unknown]
